FAERS Safety Report 25220729 (Version 1)
Quarter: 2025Q2

REPORT INFORMATION
  Report Type: Spontaneous
  Country: BE (occurrence: BE)
  Receive Date: 20250421
  Receipt Date: 20250421
  Transmission Date: 20250717
  Serious: Yes (Life-Threatening, Hospitalization)
  Sender: PFIZER
  Company Number: BE-PFIZER INC-PV202500044957

PATIENT
  Age: 25 Year
  Sex: Male

DRUGS (2)
  1. KETAMINE HYDROCHLORIDE [Suspect]
     Active Substance: KETAMINE HYDROCHLORIDE
  2. COCAINE [Suspect]
     Active Substance: COCAINE

REACTIONS (3)
  - Drug abuse [Unknown]
  - Compartment syndrome [Recovered/Resolved]
  - Rhabdomyolysis [Recovered/Resolved]
